FAERS Safety Report 15501343 (Version 1)
Quarter: 2018Q4

REPORT INFORMATION
  Report Type: Spontaneous
  Country: CA (occurrence: CA)
  Receive Date: 20181015
  Receipt Date: 20181015
  Transmission Date: 20190205
  Serious: Yes (Life-Threatening, Hospitalization)
  Sender: FDA-Public Use
  Company Number: PHHY2018CA126543

PATIENT
  Age: 82 Year
  Sex: Male
  Weight: 90.71 kg

DRUGS (1)
  1. DONEPEZIL SANDOZ [Suspect]
     Active Substance: DONEPEZIL HYDROCHLORIDE
     Indication: DEMENTIA
     Dosage: 5 MG, QD
     Route: 048

REACTIONS (8)
  - Abdominal pain [Recovered/Resolved]
  - Haematemesis [Recovered/Resolved]
  - Rash [Recovered/Resolved]
  - Decreased appetite [Recovered/Resolved]
  - Hypotension [Recovered/Resolved]
  - Internal haemorrhage [Recovered/Resolved]
  - Anal incontinence [Recovered/Resolved]
  - Dysuria [Recovered/Resolved]
